FAERS Safety Report 7491163-2 (Version None)
Quarter: 2011Q2

REPORT INFORMATION
  Report Type: 
  Country: None (occurrence: None)
  Receive Date: 20110519
  Receipt Date: 20110517
  Transmission Date: 20111010
  Serious: Yes (Other)
  Sender: FDA-Public Use
  Company Number: CN-ROCHE-777561

PATIENT
  Age: 42 Year
  Sex: Female

DRUGS (1)
  1. PEGINTERFERON ALFA-2A [Suspect]
     Indication: HEPATITIS B
     Route: 058
     Dates: start: 20110108, end: 20110311

REACTIONS (1)
  - ASCITES [None]
